FAERS Safety Report 5814637-6 (Version None)
Quarter: 2008Q3

REPORT INFORMATION
  Report Type: 
  Country: None (occurrence: None)
  Receive Date: 20080718
  Receipt Date: 20071116
  Transmission Date: 20090109
  Serious: No
  Sender: FDA-Public Use
  Company Number: US-KINGPHARMUSA00001-K200701487

PATIENT

DRUGS (2)
  1. LEVOXYL [Suspect]
     Indication: HYPOTHYROIDISM
     Dosage: 112 MCG, QD
     Route: 048
     Dates: start: 20070901
  2. ATENOLOL [Concomitant]
     Dates: start: 20000101

REACTIONS (1)
  - ALOPECIA [None]
